FAERS Safety Report 16357526 (Version 4)
Quarter: 2019Q3

REPORT INFORMATION
  Report Type: Spontaneous
  Country: JP (occurrence: JP)
  Receive Date: 20190527
  Receipt Date: 20190826
  Transmission Date: 20191004
  Serious: Yes (Death, Other)
  Sender: FDA-Public Use
  Company Number: JP-009507513-1905JPN002821J

PATIENT
  Age: 88 Year
  Sex: Female

DRUGS (10)
  1. BENECID [Concomitant]
     Active Substance: PROBENECID
     Dosage: UNK
     Route: 065
  2. ZACRAS [Concomitant]
     Active Substance: AMLODIPINE BESYLATE\AZILSARTAN
     Dosage: UNK
     Route: 065
  3. PAXIL [Concomitant]
     Active Substance: PAROXETINE HYDROCHLORIDE
     Dosage: UNK
     Route: 065
  4. RESTAMIN [Concomitant]
     Active Substance: DIPHENHYDRAMINE
     Dosage: UNK
     Route: 051
  5. TAKEPRON [Concomitant]
     Active Substance: LANSOPRAZOLE
     Dosage: UNK
     Route: 065
  6. STROMECTOL [Suspect]
     Active Substance: IVERMECTIN
     Indication: ACARODERMATITIS
     Dosage: UNK
     Route: 048
     Dates: start: 20190516, end: 20190516
  7. PHENOTHRIN [Concomitant]
     Active Substance: PHENOTHRIN
     Indication: ACARODERMATITIS
     Dosage: UNK
     Route: 051
     Dates: start: 20190516
  8. BAYASPIRIN [Concomitant]
     Active Substance: ASPIRIN
     Dosage: UNK
     Route: 065
  9. EDIROL [Concomitant]
     Active Substance: ELDECALCITOL
     Dosage: UNK
     Route: 048
  10. HOKUNALIN:TAPE [Concomitant]
     Active Substance: TULOBUTEROL
     Dosage: UNK
     Route: 051

REACTIONS (2)
  - Marasmus [Fatal]
  - Haematemesis [Fatal]

NARRATIVE: CASE EVENT DATE: 20190517
